FAERS Safety Report 8132252-9 (Version None)
Quarter: 2012Q1

REPORT INFORMATION
  Report Type: 
  Country: None (occurrence: None)
  Receive Date: 20120213
  Receipt Date: 20120131
  Transmission Date: 20120608
  Serious: Yes (Disabling)
  Sender: FDA-Public Use
  Company Number: JP-ALLERGAN-1102864US

PATIENT
  Age: 77 Year
  Sex: Female

DRUGS (12)
  1. CARTEOLOL HYDROCHLORIDE [Concomitant]
     Indication: PRODUCT USED FOR UNKNOWN INDICATION
     Dosage: UNK
     Route: 047
     Dates: start: 20101116, end: 20101214
  2. LUMIGAN [Suspect]
     Dosage: 1 GTT, QD
     Route: 047
     Dates: start: 20100518
  3. MIKELAN LA [Concomitant]
     Indication: PRODUCT USED FOR UNKNOWN INDICATION
     Dosage: UNK
     Dates: start: 20101214
  4. TRUSOPT [Concomitant]
     Indication: PRODUCT USED FOR UNKNOWN INDICATION
     Route: 047
  5. DETANTOL [Concomitant]
     Indication: PRODUCT USED FOR UNKNOWN INDICATION
     Dosage: UNK
     Route: 047
     Dates: start: 20101214
  6. FLUOROMETHOLONE [Concomitant]
     Indication: PRODUCT USED FOR UNKNOWN INDICATION
     Route: 047
  7. DIAMOX SRC [Concomitant]
     Indication: PRODUCT USED FOR UNKNOWN INDICATION
     Dosage: UNK
     Dates: start: 20110111, end: 20110208
  8. ASPARA K [Concomitant]
     Indication: PRODUCT USED FOR UNKNOWN INDICATION
     Dosage: UNK
     Dates: start: 20110111, end: 20110208
  9. CARTEOLOL HYDROCHLORIDE [Concomitant]
     Dosage: UNK
  10. LUMIGAN [Suspect]
     Indication: OPEN ANGLE GLAUCOMA
     Dosage: 1 GTT, QD
     Route: 047
     Dates: start: 20100518, end: 20110517
  11. AZOPT [Concomitant]
     Indication: PRODUCT USED FOR UNKNOWN INDICATION
     Dosage: UNK
  12. TIMOLOL MALEATE [Concomitant]
     Indication: PRODUCT USED FOR UNKNOWN INDICATION
     Dosage: UNK
     Route: 047
     Dates: start: 20101012, end: 20111116

REACTIONS (3)
  - INTRAOCULAR PRESSURE INCREASED [None]
  - THERAPEUTIC RESPONSE DECREASED [None]
  - CONJUNCTIVAL HYPERAEMIA [None]
